FAERS Safety Report 6469019-3 (Version None)
Quarter: 2009Q4

REPORT INFORMATION
  Report Type: 
  Country: None (occurrence: None)
  Receive Date: 20091203
  Receipt Date: 20091125
  Transmission Date: 20100525
  Serious: Yes (Hospitalization)
  Sender: FDA-Public Use
  Company Number: PHHY2009GR51760

PATIENT
  Age: 78 Year
  Sex: Male

DRUGS (2)
  1. RASILEZ [Suspect]
     Indication: HYPERTENSION
     Dosage: UNK
     Route: 048
     Dates: start: 20091001, end: 20091001
  2. NITRITE NOS [Concomitant]

REACTIONS (2)
  - FOREIGN BODY [None]
  - THROAT IRRITATION [None]
